FAERS Safety Report 23128154 (Version 1)
Quarter: 2023Q4

REPORT INFORMATION
  Report Type: Report from Study
  Country: US (occurrence: US)
  Receive Date: 20231031
  Receipt Date: 20231031
  Transmission Date: 20240110
  Serious: Yes (Other)
  Sender: FDA-Public Use
  Company Number: US-002147023-NVSC2023US229173

PATIENT
  Age: 89 Year
  Sex: Female
  Weight: 57.596 kg

DRUGS (8)
  1. LEQVIO [Suspect]
     Active Substance: INCLISIRAN SODIUM
     Indication: Muscular weakness
     Dosage: 284 MG (ONE SINGLE DOSE)
     Route: 058
     Dates: start: 20231018
  2. LEQVIO [Suspect]
     Active Substance: INCLISIRAN SODIUM
     Indication: Gait disturbance
  3. LEQVIO [Suspect]
     Active Substance: INCLISIRAN SODIUM
     Indication: Myalgia
  4. LEQVIO [Suspect]
     Active Substance: INCLISIRAN SODIUM
     Indication: Arthralgia
  5. LEQVIO [Suspect]
     Active Substance: INCLISIRAN SODIUM
     Indication: Abdominal discomfort
  6. LEQVIO [Suspect]
     Active Substance: INCLISIRAN SODIUM
     Indication: Vision blurred
  7. LEQVIO [Suspect]
     Active Substance: INCLISIRAN SODIUM
     Indication: Back pain
  8. LEQVIO [Suspect]
     Active Substance: INCLISIRAN SODIUM
     Indication: Headache

REACTIONS (2)
  - Coordination abnormal [Not Recovered/Not Resolved]
  - Product use in unapproved indication [Unknown]

NARRATIVE: CASE EVENT DATE: 20231018
